FAERS Safety Report 9775002 (Version 1)
Quarter: 2013Q4

REPORT INFORMATION
  Report Type: Spontaneous
  Country: US (occurrence: US)
  Receive Date: 20131220
  Receipt Date: 20131220
  Transmission Date: 20140711
  Serious: No
  Sender: FDA-Public Use
  Company Number: US-GLAXOSMITHKLINE-A1035160A

PATIENT
  Age: 85 Year
  Sex: Male

DRUGS (3)
  1. AVODART [Suspect]
     Indication: PROSTATOMEGALY
     Dosage: 1CAP PER DAY
     Route: 048
     Dates: start: 2009
  2. CELEBREX [Concomitant]
  3. ATACAND [Concomitant]

REACTIONS (1)
  - Urinary incontinence [Not Recovered/Not Resolved]
